FAERS Safety Report 6252976-8 (Version None)
Quarter: 2009Q3

REPORT INFORMATION
  Report Type: 
  Country: None (occurrence: None)
  Receive Date: 20090701
  Receipt Date: 20090622
  Transmission Date: 20100115
  Serious: Yes (Hospitalization)
  Sender: FDA-Public Use
  Company Number: D0061924A

PATIENT

DRUGS (7)
  1. REQUIP [Suspect]
     Indication: PARKINSONISM
     Dosage: 18MG PER DAY
     Route: 065
     Dates: start: 20081101
  2. ISICOM [Suspect]
     Route: 065
  3. ENTACAPONE [Suspect]
     Route: 065
  4. STALEVO 100 [Concomitant]
     Dosage: 300MG PER DAY
     Route: 065
  5. SIFROL [Concomitant]
     Dosage: .35MG FOUR TIMES PER DAY
     Route: 065
  6. MADOPAR DEPOT [Concomitant]
     Dosage: 100MG PER DAY
     Route: 065
  7. CLINICAL STUDY MEDICATION [Concomitant]
     Route: 065

REACTIONS (3)
  - ATRIAL FIBRILLATION [None]
  - MALAISE [None]
  - ON AND OFF PHENOMENON [None]
